FAERS Safety Report 23927633 (Version 4)
Quarter: 2024Q3

REPORT INFORMATION
  Report Type: Spontaneous
  Country: US (occurrence: US)
  Receive Date: 20240531
  Receipt Date: 20240708
  Transmission Date: 20241017
  Serious: Yes (Other)
  Sender: APELLIS PHARMACEUTICALS
  Company Number: US-APELLIS-2024-APL-0000164

PATIENT

DRUGS (3)
  1. SYFOVRE [Suspect]
     Active Substance: PEGCETACOPLAN
     Indication: Dry age-related macular degeneration
     Dates: start: 2023
  2. SYFOVRE [Suspect]
     Active Substance: PEGCETACOPLAN
     Dates: start: 20240425
  3. EYLEA [Concomitant]
     Active Substance: AFLIBERCEPT
     Indication: Product used for unknown indication
     Dosage: ONCE EVERY 6-7 WEEKS

REACTIONS (9)
  - Retinal vasculitis [Recovering/Resolving]
  - Vitritis [Recovering/Resolving]
  - Retinal haemorrhage [Recovering/Resolving]
  - Eye inflammation [Recovering/Resolving]
  - Endophthalmitis [Recovering/Resolving]
  - Visual impairment [Recovering/Resolving]
  - Vitreous opacities [Unknown]
  - Eye pain [Recovering/Resolving]
  - Anterior chamber cell [Recovering/Resolving]

NARRATIVE: CASE EVENT DATE: 20240502
